FAERS Safety Report 9330267 (Version 3)
Quarter: 2013Q3

REPORT INFORMATION
  Report Type: Report from Study
  Country: PL (occurrence: PL)
  Receive Date: 20130605
  Receipt Date: 20130723
  Transmission Date: 20140515
  Serious: Yes (Hospitalization)
  Sender: FDA-Public Use
  Company Number: PL-009507513-1305POL016070

PATIENT
  Age: 74 Year
  Sex: Female
  Weight: 81 kg

DRUGS (6)
  1. DEXAMETHASONE [Suspect]
     Indication: PLASMA CELL MYELOMA
     Dosage: 20MG ORALLY ON DAYS ONE, TWO, FOUR, FIVE, EIGHT, NINE 11 AND 12 EVERY 21 DAYS
     Route: 048
     Dates: start: 20130226, end: 2013
  2. DEXAMETHASONE [Suspect]
     Dosage: UNK
     Route: 048
     Dates: start: 20130517
  3. DEXAMETHASONE [Suspect]
     Dosage: UNK
     Route: 048
     Dates: start: 20130412, end: 20130511
  4. BORTEZOMIB [Suspect]
     Indication: PLASMA CELL MYELOMA
     Dosage: 1.3MG/M2 SUBCUTANEOUSLY ON DAYS ONE, FOUR, EIGHT AND 11 EVERY 21 DAYS
     Route: 058
     Dates: start: 20130226, end: 2013
  5. BORTEZOMIB [Suspect]
     Dosage: UNK
     Route: 058
     Dates: start: 20130517
  6. BORTEZOMIB [Suspect]
     Dosage: UNK
     Route: 058
     Dates: start: 20130412, end: 20130510

REACTIONS (4)
  - Angina pectoris [Recovered/Resolved]
  - Acute myocardial infarction [Recovered/Resolved]
  - Thrombocytopenia [Unknown]
  - Anaemia [Unknown]
